FAERS Safety Report 6939547-2 (Version None)
Quarter: 2010Q3

REPORT INFORMATION
  Report Type: 
  Country: None (occurrence: None)
  Receive Date: 20100819
  Receipt Date: 20100810
  Transmission Date: 20110219
  Serious: Yes (Other)
  Sender: FDA-Public Use
  Company Number: B0670178A

PATIENT
  Sex: 0

DRUGS (1)
  1. ROSIGLITAZONE MALEATE [Suspect]

REACTIONS (2)
  - ACUTE HEPATIC FAILURE [None]
  - LIVER INJURY [None]
